FAERS Safety Report 21568902 (Version 2)
Quarter: 2022Q4

REPORT INFORMATION
  Report Type: Spontaneous
  Country: IN (occurrence: IN)
  Receive Date: 20221108
  Receipt Date: 20221122
  Transmission Date: 20230112
  Serious: Yes (Other)
  Sender: FDA-Public Use
  Company Number: IN-SUN PHARMACEUTICAL INDUSTRIES LTD-2022R1-362279

PATIENT
  Age: 30 Year
  Sex: Male

DRUGS (3)
  1. LEVETIRACETAM [Suspect]
     Active Substance: LEVETIRACETAM
     Indication: Seizure
     Dosage: 1,500 MG LOADING AND 750 MG IV BD
     Route: 042
  2. PHENOBARBITAL [Concomitant]
     Active Substance: PHENOBARBITAL
     Indication: Seizure
     Dosage: 1,000 MG LOADING AND 60 MG Q8H
     Route: 042
  3. FOSPHENYTOIN [Concomitant]
     Active Substance: FOSPHENYTOIN
     Indication: Seizure
     Dosage: 1,500 MG LOADING AND 150 MG Q8 HOURLY
     Route: 042

REACTIONS (4)
  - Acute kidney injury [Unknown]
  - Myocarditis [Unknown]
  - Liver injury [Unknown]
  - Upper gastrointestinal haemorrhage [Unknown]
